FAERS Safety Report 18545317 (Version 1)
Quarter: 2020Q4

REPORT INFORMATION
  Report Type: Spontaneous
  Country: US (occurrence: US)
  Receive Date: 20201125
  Receipt Date: 20201125
  Transmission Date: 20210114
  Serious: Yes (Other)
  Sender: FDA-Public Use
  Company Number: None

PATIENT
  Age: 68 Year
  Sex: Male
  Weight: 104.7 kg

DRUGS (2)
  1. REMDESIVIR. [Suspect]
     Active Substance: REMDESIVIR
     Indication: COVID-19
     Route: 041
     Dates: start: 20201031, end: 20201103
  2. CARVEDILOL 6.25 MG PO BID [Concomitant]
     Dates: start: 20201031, end: 20201103

REACTIONS (3)
  - Dizziness [None]
  - Sinus arrest [None]
  - Bradycardia [None]

NARRATIVE: CASE EVENT DATE: 20201103
